FAERS Safety Report 6169807-7 (Version None)
Quarter: 2009Q2

REPORT INFORMATION
  Report Type: 
  Country: None (occurrence: None)
  Receive Date: 20090428
  Receipt Date: 20090107
  Transmission Date: 20091009
  Serious: No
  Sender: FDA-Public Use
  Company Number: US-AMGEN-US327336

PATIENT
  Sex: Male

DRUGS (7)
  1. SENSIPAR [Suspect]
     Indication: HYPERPARATHYROIDISM SECONDARY
     Route: 065
     Dates: start: 20081101
  2. ZEMPLAR [Concomitant]
     Route: 065
  3. PHOSLO [Concomitant]
     Route: 065
  4. NOVOLIN 70/30 [Concomitant]
     Route: 065
  5. PLAVIX [Concomitant]
     Route: 065
  6. LABETALOL HCL [Concomitant]
     Route: 065
  7. MINOXIDIL [Concomitant]
     Route: 065

REACTIONS (1)
  - FREQUENT BOWEL MOVEMENTS [None]
